FAERS Safety Report 24741962 (Version 2)
Quarter: 2025Q1

REPORT INFORMATION
  Report Type: Report from Study
  Country: IN (occurrence: IN)
  Receive Date: 20241217
  Receipt Date: 20250101
  Transmission Date: 20250408
  Serious: Yes (Hospitalization)
  Sender: ROCHE
  Company Number: IN-ROCHE-10000152014

PATIENT
  Age: 68 Year
  Sex: Male
  Weight: 58 kg

DRUGS (1)
  1. VABYSMO [Suspect]
     Active Substance: FARICIMAB-SVOA
     Indication: Diabetic retinal oedema
     Route: 050
     Dates: start: 20240706

REACTIONS (2)
  - Visual impairment [Unknown]
  - Thrombosis [Unknown]

NARRATIVE: CASE EVENT DATE: 20240810
